FAERS Safety Report 20705279 (Version 9)
Quarter: 2023Q1

REPORT INFORMATION
  Report Type: Report from Study
  Country: PR (occurrence: PR)
  Receive Date: 20220413
  Receipt Date: 20230104
  Transmission Date: 20230418
  Serious: Yes (Hospitalization)
  Sender: FDA-Public Use
  Company Number: PR-HBP-2022PR025941

PATIENT

DRUGS (16)
  1. INFIGRATINIB [Suspect]
     Active Substance: INFIGRATINIB
     Indication: Transitional cell carcinoma
     Dosage: 125 MILLIGRAM, QD
     Dates: start: 20220315, end: 20220321
  2. INFIGRATINIB [Suspect]
     Active Substance: INFIGRATINIB
     Dosage: 125 MILLIGRAM, QD
     Route: 048
     Dates: start: 20220323, end: 20220327
  3. INFIGRATINIB [Suspect]
     Active Substance: INFIGRATINIB
     Dosage: 125 MILLIGRAM, QD
     Route: 048
     Dates: start: 20220402, end: 20220404
  4. INFIGRATINIB [Suspect]
     Active Substance: INFIGRATINIB
     Dosage: 125 MILLIGRAM, QD
     Route: 048
     Dates: start: 20220412, end: 20220419
  5. INFIGRATINIB [Suspect]
     Active Substance: INFIGRATINIB
     Dosage: 125 MILLIGRAM, QD
     Route: 048
     Dates: start: 20220428, end: 20220501
  6. INFIGRATINIB [Suspect]
     Active Substance: INFIGRATINIB
     Dosage: 100 MILLIGRAM, QD
     Dates: start: 20220412, end: 20220419
  7. INFIGRATINIB [Suspect]
     Active Substance: INFIGRATINIB
     Dosage: 100 MILLIGRAM, QD
     Dates: start: 20220428, end: 20220501
  8. ALUMINUM HYDROXIDE\MAGNESIUM CARBONATE [Concomitant]
     Active Substance: ALUMINUM HYDROXIDE\MAGNESIUM CARBONATE
     Indication: Gastrooesophageal reflux disease
     Dosage: 20 MILLIGRAM, BID
     Dates: start: 2021
  9. FOSAMAX [Concomitant]
     Active Substance: ALENDRONATE SODIUM
     Indication: Osteoporosis
     Dosage: 70 MILLIGRAM, QD
     Dates: start: 2017
  10. XARELTO [Concomitant]
     Active Substance: RIVAROXABAN
     Indication: Deep vein thrombosis
     Dosage: 20 MILLIGRAM, QD
     Dates: start: 2015
  11. LOSARTAN [Concomitant]
     Active Substance: LOSARTAN
     Indication: Hypertension
     Dosage: 100 MILLIGRAM, QD
     Dates: start: 2018
  12. ZOCOR [Concomitant]
     Active Substance: SIMVASTATIN
     Indication: Hypercholesterolaemia
     Dosage: 20 MILLIGRAM, QD
     Dates: start: 2020
  13. PRILOSEC [Concomitant]
     Active Substance: OMEPRAZOLE MAGNESIUM
     Indication: Gastrooesophageal reflux disease
     Dosage: 20 MILLIGRAM, QD
     Dates: start: 2012
  14. KLONOPIN [Concomitant]
     Active Substance: CLONAZEPAM
     Indication: Anxiety
     Dosage: 1 MILLIGRAM, QD
     Dates: start: 2018
  15. PHOSLO [Concomitant]
     Active Substance: CALCIUM ACETATE
     Indication: Hyperphosphataemia
     Dosage: 2 TABLET, TID
     Route: 048
  16. PHOSLO [Concomitant]
     Active Substance: CALCIUM ACETATE
     Dosage: 2 TABLET, TID
     Dates: start: 20220321

REACTIONS (3)
  - Dehydration [Recovered/Resolved]
  - Diarrhoea [Recovered/Resolved]
  - Vomiting [Recovered/Resolved]

NARRATIVE: CASE EVENT DATE: 20220328
